FAERS Safety Report 20192993 (Version 1)
Quarter: 2021Q4

REPORT INFORMATION
  Report Type: Spontaneous
  Country: GB (occurrence: GB)
  Receive Date: 20211216
  Receipt Date: 20211216
  Transmission Date: 20220303
  Serious: Yes (Hospitalization)
  Sender: FDA-Public Use
  Company Number: None

PATIENT
  Age: 91 Year
  Sex: Female
  Weight: 52.3 kg

DRUGS (17)
  1. METHOTREXATE [Suspect]
     Active Substance: METHOTREXATE
     Indication: Rheumatoid arthritis
     Route: 048
     Dates: start: 20150610, end: 20211101
  2. ADALIMUMAB [Suspect]
     Active Substance: ADALIMUMAB
     Indication: Rheumatoid arthritis
     Route: 058
     Dates: start: 20150610, end: 20211101
  3. AMLODIPINE [Concomitant]
     Active Substance: AMLODIPINE BESYLATE
  4. ATENOLOL [Concomitant]
     Active Substance: ATENOLOL
  5. BETAHISTINE [Concomitant]
     Active Substance: BETAHISTINE
  6. BUPRENORPHINE [Concomitant]
     Active Substance: BUPRENORPHINE
  7. EVACAL D3 CHEWABLE [Concomitant]
  8. CODEINE [Concomitant]
     Active Substance: CODEINE
  9. DICLOFENAC [Concomitant]
     Active Substance: DICLOFENAC
  10. FOLIC ACID [Concomitant]
     Active Substance: FOLIC ACID
  11. FUROSEMIDE SODIUM [Concomitant]
     Active Substance: FUROSEMIDE SODIUM
  12. LACTULOSE [Concomitant]
     Active Substance: LACTULOSE
  13. LANSOPRAZOLE [Concomitant]
     Active Substance: LANSOPRAZOLE
  14. NEUTROGENA TGEL THERAPEUTIC [Concomitant]
     Active Substance: COAL TAR
  15. ACETAMINOPHEN [Concomitant]
     Active Substance: ACETAMINOPHEN
  16. ALBUTEROL [Concomitant]
     Active Substance: ALBUTEROL
  17. SENNA [Concomitant]
     Active Substance: SENNA LEAF\SENNOSIDES\SENNOSIDES A AND B

REACTIONS (2)
  - Bone marrow failure [Recovering/Resolving]
  - Neutropenic sepsis [Unknown]

NARRATIVE: CASE EVENT DATE: 20211031
